FAERS Safety Report 4754276-1 (Version None)
Quarter: 2005Q3

REPORT INFORMATION
  Report Type: 
  Country: None (occurrence: None)
  Receive Date: 20050825
  Receipt Date: 20050816
  Transmission Date: 20060218
  Serious: Yes (Death, Hospitalization)
  Sender: FDA-Public Use
  Company Number: 2005-01-1690

PATIENT
  Age: 55 Year
  Sex: Male
  Weight: 83.9154 kg

DRUGS (12)
  1. PEG-INTRON [Suspect]
     Indication: HEPATITIS C
     Dosage: 150 MCG QWK SUBCUTANEOUS
     Route: 058
     Dates: start: 20041230, end: 20050101
  2. COPEGUS [Suspect]
     Indication: HEPATITIS C
     Dosage: 1200 MG QD ORAL
     Route: 048
     Dates: start: 20031201, end: 20050116
  3. PEGASYS [Suspect]
     Indication: HEPATITIS C
     Dosage: 180 MCG QWK SUBCUTANEOUS
     Route: 048
     Dates: start: 20031201, end: 20041230
  4. WELLBUTRIN [Suspect]
     Indication: DEPRESSION
     Dosage: 100 MG TID ORAL
     Route: 048
     Dates: start: 20031201, end: 20050116
  5. PERCOCET [Concomitant]
  6. ACETAMINOPHEN AND HYDROCODONE BITARTRATE [Concomitant]
  7. PROTONIX [Concomitant]
  8. PERCODAN [Concomitant]
  9. PROCRIT [Concomitant]
  10. DIAZEPAM [Concomitant]
  11. LORAZEPAM [Concomitant]
  12. LEVOXYL [Concomitant]

REACTIONS (3)
  - CEREBRAL HAEMORRHAGE [None]
  - HAEMORRHAGIC STROKE [None]
  - PROTHROMBIN TIME SHORTENED [None]
